FAERS Safety Report 11335552 (Version 1)
Quarter: 2015Q3

REPORT INFORMATION
  Report Type: Spontaneous
  Country: US (occurrence: None)
  Receive Date: 20150731
  Receipt Date: 20150731
  Transmission Date: 20151125
  Serious: No
  Sender: FDA-Public Use
  Company Number: None

PATIENT
  Age: 69 Year
  Sex: Female

DRUGS (4)
  1. PRILOSEC [Concomitant]
     Active Substance: OMEPRAZOLE MAGNESIUM
  2. LOSARTAN. [Concomitant]
     Active Substance: LOSARTAN
  3. LIOTHYRONINE [Concomitant]
     Active Substance: LIOTHYRONINE
  4. MONSELS SOLUTION [Suspect]
     Active Substance: FERRIC SUBSULFATE
     Indication: HAEMOSTASIS
     Dates: start: 20150604, end: 20150604

REACTIONS (1)
  - Inflammation [None]

NARRATIVE: CASE EVENT DATE: 20150604
